FAERS Safety Report 9167108 (Version 1)
Quarter: 2013Q1

REPORT INFORMATION
  Report Type: Spontaneous
  Country: IT (occurrence: None)
  Receive Date: 20130304
  Receipt Date: 20130304
  Transmission Date: 20140127
  Serious: Yes (Other)
  Sender: FDA-Public Use
  Company Number: 1612864

PATIENT
  Age: 58 Year
  Sex: Female

DRUGS (12)
  1. CYTARABINE [Suspect]
     Indication: B-CELL LYMPHOMA
     Dosage: INTRAVENOUS (NOT OTHERWISE SPECIFIED)?
     Route: 042
     Dates: start: 20130123, end: 20130128
  2. (PANTOPRAZOLO) [Concomitant]
  3. (ACICLOVIR) [Concomitant]
  4. (FLUCONAZOLO) [Concomitant]
  5. (LEVOFLOXACINA) [Concomitant]
  6. (METRONIDAZOLO) [Concomitant]
  7. (NAVOBAN) [Concomitant]
  8. (DECADRON) [Concomitant]
  9. (GRANULOKINE) [Concomitant]
  10. (DIAMOX) [Concomitant]
  11. (DEURSIL) [Concomitant]
  12. (BACTRIM) [Concomitant]

REACTIONS (3)
  - Dermatitis bullous [None]
  - Conjunctivitis [None]
  - Skin exfoliation [None]
